FAERS Safety Report 23859191 (Version 2)
Quarter: 2024Q2

REPORT INFORMATION
  Report Type: Spontaneous
  Country: FR (occurrence: FR)
  Receive Date: 20240515
  Receipt Date: 20240524
  Transmission Date: 20240716
  Serious: Yes (Life-Threatening)
  Sender: FDA-Public Use
  Company Number: None

PATIENT
  Age: 71 Year
  Sex: Male
  Weight: 93.5 kg

DRUGS (10)
  1. FUROSEMIDE [Interacting]
     Active Substance: FUROSEMIDE
     Indication: Hypertension
     Dosage: 80 MILLIGRAM, QD
     Route: 048
     Dates: start: 20240401, end: 20240401
  2. AMLODIPINE [Interacting]
     Active Substance: AMLODIPINE BESYLATE
     Indication: Hypertension
     Dosage: 5 MILLIGRAM, QD
     Route: 048
     Dates: start: 20240401, end: 20240401
  3. PERINDOPRIL [Interacting]
     Active Substance: PERINDOPRIL
     Indication: Hypertension
     Dosage: 5 MILLIGRAM, QD
     Route: 048
     Dates: start: 20240401, end: 20240401
  4. QUETIAPINE [Interacting]
     Active Substance: QUETIAPINE
     Indication: Schizophrenia
     Dosage: 800 MILLIGRAM, QD
     Route: 048
     Dates: start: 20240401, end: 20240401
  5. ALFUZOSIN [Interacting]
     Active Substance: ALFUZOSIN
     Indication: Benign prostatic hyperplasia
     Dosage: 10 MILLIGRAM, QD
     Route: 048
     Dates: start: 20240401, end: 20240401
  6. BISOPROLOL [Interacting]
     Active Substance: BISOPROLOL\BISOPROLOL FUMARATE
     Indication: Hypertension
     Dosage: 5 MILLIGRAM, QD
     Route: 048
     Dates: start: 20240401, end: 20240401
  7. ZUCLOPENTHIXOL ACETATE [Interacting]
     Active Substance: ZUCLOPENTHIXOL ACETATE
     Indication: Schizophrenia
     Dosage: 3 DOSAGE FORM, Q2W
     Route: 030
  8. HALOPERIDOL [Interacting]
     Active Substance: HALOPERIDOL
     Indication: Schizophrenia
     Dosage: 15 MILLIGRAM, QD
     Route: 048
     Dates: start: 20240401, end: 20240401
  9. TRIHEXYPHENIDYL HYDROCHLORIDE [Concomitant]
     Active Substance: TRIHEXYPHENIDYL HYDROCHLORIDE
     Dosage: 10 MILLIGRAM, QD
     Route: 048
  10. CHOLECALCIFEROL [Concomitant]
     Active Substance: CHOLECALCIFEROL
     Dosage: 1 DOSAGE FORM, MONTHLY (100000 IU)
     Route: 048

REACTIONS (3)
  - Acute kidney injury [Recovered/Resolved]
  - Hypotension [Recovering/Resolving]
  - Drug interaction [Unknown]

NARRATIVE: CASE EVENT DATE: 20240401
